FAERS Safety Report 18191706 (Version 1)
Quarter: 2020Q3

REPORT INFORMATION
  Report Type: Spontaneous
  Country: US (occurrence: US)
  Receive Date: 20200824
  Receipt Date: 20200824
  Transmission Date: 20201103
  Serious: Yes (Hospitalization)
  Sender: FDA-Public Use
  Company Number: None

PATIENT
  Sex: Male

DRUGS (1)
  1. HYDRALAZINE [Suspect]
     Active Substance: HYDRALAZINE HYDROCHLORIDE
     Route: 048
     Dates: start: 20200824, end: 20200824

REACTIONS (4)
  - Myalgia [None]
  - Arthralgia [None]
  - Dyspnoea [None]
  - Vision blurred [None]

NARRATIVE: CASE EVENT DATE: 20200824
